FAERS Safety Report 5609461-3 (Version None)
Quarter: 2008Q1

REPORT INFORMATION
  Report Type: 
  Country: None (occurrence: None)
  Receive Date: 20080131
  Receipt Date: 20080108
  Transmission Date: 20080703
  Serious: Yes (Other)
  Sender: FDA-Public Use
  Company Number: CN-ASTRAZENECA-2008AP00250

PATIENT
  Age: 34 Year
  Sex: Female

DRUGS (1)
  1. LOSEC I.V. [Suspect]
     Indication: DUODENAL ULCER
     Route: 048

REACTIONS (2)
  - LARYNGEAL OEDEMA [None]
  - URTICARIA [None]
